FAERS Safety Report 5768792-7 (Version None)
Quarter: 2008Q2

REPORT INFORMATION
  Report Type: 
  Country: None (occurrence: None)
  Receive Date: 20080612
  Receipt Date: 20080312
  Transmission Date: 20081010
  Serious: No
  Sender: FDA-Public Use
  Company Number: US-ABBOTT-08P-163-0442439-00

PATIENT
  Sex: Female
  Weight: 80.812 kg

DRUGS (1)
  1. HUMIRA [Suspect]
     Indication: PSORIATIC ARTHROPATHY
     Route: 058
     Dates: start: 20070201, end: 20080218

REACTIONS (5)
  - ARTHRALGIA [None]
  - CERVICAL DYSPLASIA [None]
  - INJECTION SITE PAIN [None]
  - PAPILLOMA VIRAL INFECTION [None]
  - PRURITUS [None]
